FAERS Safety Report 4605188-5 (Version None)
Quarter: 2005Q1

REPORT INFORMATION
  Report Type: 
  Country: None (occurrence: None)
  Receive Date: 20050311
  Receipt Date: 20050311
  Transmission Date: 20050727
  Serious: Yes (Other)
  Sender: FDA-Public Use
  Company Number: None

PATIENT
  Age: 65 Year
  Sex: Female

DRUGS (1)
  1. MESTINON [Suspect]
     Dosage: 5 ML 3 TO 4 TIMES PER DAY
     Dates: start: 20050215, end: 20050304

REACTIONS (3)
  - ASTHENIA [None]
  - MIGRAINE [None]
  - PHARMACEUTICAL PRODUCT COMPLAINT [None]
